FAERS Safety Report 8783007 (Version 1)
Quarter: 2012Q4

REPORT INFORMATION
  Report Type: Report from Study
  Country: US (occurrence: US)
  Receive Date: 20120913
  Receipt Date: 20120913
  Transmission Date: 20130627
  Serious: No
  Sender: FDA-Public Use
  Company Number: US-VERTEX PHARMACEUTICAL INC.-AE-2012-008770

PATIENT

DRUGS (6)
  1. INCIVEK [Suspect]
     Indication: HEPATITIS C
     Route: 048
  2. PEGASYS [Concomitant]
     Indication: HEPATITIS C
     Route: 058
  3. RIBAPAK PAK [Concomitant]
     Indication: HEPATITIS C
     Route: 048
  4. PRILOSEC CAP [Concomitant]
     Route: 048
  5. MULTIPLE VIT [Concomitant]
     Route: 048
  6. LISINOPRIL/HCTZ [Concomitant]
     Route: 048

REACTIONS (3)
  - Headache [Unknown]
  - Anorectal discomfort [Unknown]
  - Nausea [Unknown]
